FAERS Safety Report 4405656-5 (Version None)
Quarter: 2004Q3

REPORT INFORMATION
  Report Type: 
  Country: None (occurrence: None)
  Receive Date: 20040723
  Receipt Date: 20031105
  Transmission Date: 20050211
  Serious: No
  Sender: FDA-Public Use
  Company Number: US-GLAXOSMITHKLINE-A0433122A

PATIENT
  Age: 47 Year
  Sex: Female

DRUGS (7)
  1. AVANDIA [Suspect]
     Dosage: 4MG PER DAY
     Route: 048
     Dates: start: 20030901
  2. GLUCOVANCE [Concomitant]
  3. K-DUR 10 [Concomitant]
  4. MAXZIDE [Concomitant]
  5. PREMARIN [Concomitant]
  6. RELAFEN [Concomitant]
  7. VITAMIN [Concomitant]

REACTIONS (2)
  - DYSPNOEA [None]
  - SWELLING [None]
